FAERS Safety Report 5812671-3 (Version None)
Quarter: 2008Q3

REPORT INFORMATION
  Report Type: 
  Country: None (occurrence: None)
  Receive Date: 20080717
  Receipt Date: 20080714
  Transmission Date: 20090109
  Serious: Yes (Hospitalization, Other)
  Sender: FDA-Public Use
  Company Number: US-ASTRAZENECA-2008UW14071

PATIENT
  Age: 93 Year
  Sex: Male
  Weight: 56.7 kg

DRUGS (3)
  1. SEROQUEL [Suspect]
     Indication: DEMENTIA
     Route: 048
     Dates: start: 20080708
  2. PLAVIX [Concomitant]
  3. HEART MEDICINE [Concomitant]

REACTIONS (7)
  - DYSPHAGIA [None]
  - HEART RATE IRREGULAR [None]
  - LETHARGY [None]
  - MOVEMENT DISORDER [None]
  - NERVOUSNESS [None]
  - PNEUMONIA [None]
  - RHINORRHOEA [None]
